FAERS Safety Report 10152020 (Version 3)
Quarter: 2014Q2

REPORT INFORMATION
  Report Type: Spontaneous
  Country: JP (occurrence: JP)
  Receive Date: 20140505
  Receipt Date: 20140611
  Transmission Date: 20141212
  Serious: Yes (Other)
  Sender: FDA-Public Use
  Company Number: PHHY2014JP047836

PATIENT
  Age: 71 Year
  Sex: Male

DRUGS (1)
  1. GLIVEC [Suspect]
     Indication: GASTROINTESTINAL STROMAL TUMOUR
     Dosage: 400 MG, DAILY
     Route: 048
     Dates: start: 20121027, end: 20130423

REACTIONS (4)
  - Interstitial lung disease [Recovering/Resolving]
  - Dyspnoea exertional [Unknown]
  - Anastomotic stenosis [Recovering/Resolving]
  - Rash generalised [Recovering/Resolving]
